FAERS Safety Report 7287943-9 (Version None)
Quarter: 2011Q1

REPORT INFORMATION
  Report Type: 
  Country: None (occurrence: None)
  Receive Date: 20110211
  Receipt Date: 20110203
  Transmission Date: 20110831
  Serious: Yes (Life-Threatening)
  Sender: FDA-Public Use
  Company Number: IT-AMGEN-QUU435950

PATIENT
  Age: 59 Year
  Sex: Male

DRUGS (3)
  1. MEDROL [Concomitant]
     Dosage: 4 MG, UNK
     Route: 048
  2. ENBREL [Suspect]
     Indication: RHEUMATOID ARTHRITIS
     Dosage: 25 MG, UNK
     Dates: start: 20100818, end: 20100818
  3. ARAVA [Concomitant]
     Dosage: 20 MG, UNK
     Route: 048

REACTIONS (3)
  - ARTHRALGIA [None]
  - PYREXIA [None]
  - ERYTHEMA [None]
